FAERS Safety Report 19718316 (Version 1)
Quarter: 2021Q3

REPORT INFORMATION
  Report Type: Spontaneous
  Country: US (occurrence: US)
  Receive Date: 20210818
  Receipt Date: 20210818
  Transmission Date: 20211014
  Serious: Yes (Other)
  Sender: FDA-Public Use
  Company Number: US-PFIZER INC-202101025718

PATIENT
  Age: 63 Year
  Sex: Female
  Weight: 75.74 kg

DRUGS (11)
  1. MUPIROCIN. [Concomitant]
     Active Substance: MUPIROCIN
     Dosage: 2 % (GM)
  2. FLONASE ALLERGY RELIEF [Concomitant]
     Active Substance: FLUTICASONE PROPIONATE
     Dosage: UNK
  3. FISH OIL [Concomitant]
     Active Substance: FISH OIL
     Dosage: UNK(100?150 MG)
  4. VITAMIN C [Concomitant]
     Active Substance: ASCORBIC ACID
     Dosage: 1000 MG
  5. RESTASIS [Concomitant]
     Active Substance: CYCLOSPORINE
     Dosage: 0.05 % (DROPERETTE)
  6. PANTOPRAZOLE SODIUM. [Concomitant]
     Active Substance: PANTOPRAZOLE SODIUM
     Dosage: 20 MG
  7. VITAMIN D [COLECALCIFEROL] [Concomitant]
     Active Substance: CHOLECALCIFEROL
     Dosage: 10 UG
  8. LEVOTHYROXINE SODIUM. [Concomitant]
     Active Substance: LEVOTHYROXINE SODIUM
     Dosage: 100 UG
  9. SUTENT [Suspect]
     Active Substance: SUNITINIB MALATE
     Indication: RENAL CANCER
     Dosage: 25 MG, DAILY FOR 14 DAYS ON AND 14 DAYS OFF
     Route: 048
     Dates: start: 201412
  10. CALCIUM [Concomitant]
     Active Substance: CALCIUM
     Dosage: 500 MG (1250)
  11. AMLODIPINE BESYLATE 10 [Concomitant]
     Dosage: 10 MG

REACTIONS (16)
  - Diarrhoea [Unknown]
  - Product use issue [Unknown]
  - Fatigue [Unknown]
  - Nausea [Unknown]
  - Off label use [Unknown]
  - Pain in extremity [Unknown]
  - Thyroid disorder [Unknown]
  - Blood pressure increased [Unknown]
  - Weight increased [Unknown]
  - Nasal disorder [Unknown]
  - Dry eye [Unknown]
  - Temperature intolerance [Unknown]
  - Neuropathy peripheral [Unknown]
  - Pain [Unknown]
  - Arthralgia [Unknown]
  - Headache [Unknown]
